FAERS Safety Report 12724714 (Version 1)
Quarter: 2016Q3

REPORT INFORMATION
  Report Type: Other
  Country: US (occurrence: US)
  Receive Date: 20160908
  Receipt Date: 20160908
  Transmission Date: 20161109
  Serious: No
  Sender: FDA-Public Use
  Company Number: US-COL_22954_2016

PATIENT
  Age: 52 Year
  Sex: Male

DRUGS (1)
  1. COLGATE TOTAL WHITENING [Suspect]
     Active Substance: SODIUM FLUORIDE\TRICLOSAN
     Indication: PRODUCT USED FOR UNKNOWN INDICATION
     Dosage: A PEA SIZE ON THE TOOTHBRUSH/ONCE IN TOTAL/
     Route: 048
     Dates: start: 20160510, end: 20160510

REACTIONS (6)
  - Hyperaemia [Recovering/Resolving]
  - Eye irritation [Recovering/Resolving]
  - Hypersensitivity [Recovering/Resolving]
  - Retching [Recovering/Resolving]
  - Eye swelling [Recovering/Resolving]
  - Cough [Recovering/Resolving]

NARRATIVE: CASE EVENT DATE: 20160510
